FAERS Safety Report 7488268-9 (Version None)
Quarter: 2011Q2

REPORT INFORMATION
  Report Type: 
  Country: None (occurrence: None)
  Receive Date: 20110518
  Receipt Date: 20110513
  Transmission Date: 20111010
  Serious: Yes (Hospitalization, Other)
  Sender: FDA-Public Use
  Company Number: GB-TEVA-281779ISR

PATIENT
  Age: 4 Decade
  Sex: Female

DRUGS (3)
  1. INFLIXIMAB [Interacting]
  2. CYCLOSPORINE [Interacting]
     Indication: PSORIASIS
  3. METHOTREXATE [Suspect]

REACTIONS (5)
  - RENAL CANCER [None]
  - ACUTE PSYCHOSIS [None]
  - DELIRIUM [None]
  - BLOOD MAGNESIUM DECREASED [None]
  - DRUG INTERACTION [None]
